FAERS Safety Report 11516845 (Version 1)
Quarter: 2015Q3

REPORT INFORMATION
  Report Type: Spontaneous
  Country: US (occurrence: None)
  Receive Date: 20150916
  Receipt Date: 20150916
  Transmission Date: 20151125
  Serious: Yes (Other)
  Sender: FDA-Public Use
  Company Number: None

PATIENT
  Sex: Female

DRUGS (1)
  1. REBIF [Suspect]
     Active Substance: INTERFERON BETA-1A
     Indication: MULTIPLE SCLEROSIS
     Dosage: 44MCG INJ?INJECT 3X A WEEK ?SUBQ
     Route: 058
     Dates: start: 20150914, end: 20150915

REACTIONS (3)
  - Chills [None]
  - Pain [None]
  - Pyrexia [None]
